FAERS Safety Report 9226653 (Version 7)
Quarter: 2017Q3

REPORT INFORMATION
  Report Type: Spontaneous
  Country: US (occurrence: US)
  Receive Date: 20130412
  Receipt Date: 20170831
  Transmission Date: 20171128
  Serious: Yes (Hospitalization, Other)
  Sender: FDA-Public Use
  Company Number: US-PFIZER INC-2013112332

PATIENT
  Age: 65 Year
  Sex: Male
  Weight: 110 kg

DRUGS (17)
  1. METOPROLOL. [Concomitant]
     Active Substance: METOPROLOL
     Dosage: 100 MG, 4X/DAY
  2. FUROSEMIDE. [Concomitant]
     Active Substance: FUROSEMIDE
     Indication: PERICARDIAL EFFUSION
  3. CENTRUM VITAMIN FOR SENIORS [Concomitant]
     Indication: ROUTINE HEALTH MAINTENANCE
     Dosage: 1 DF, 1X/DAY (BEEN TAKING FOR 5 YEARS)
     Route: 048
  4. GEMFIBROZIL. [Concomitant]
     Active Substance: GEMFIBROZIL
     Indication: BLOOD TRIGLYCERIDES ABNORMAL
     Dosage: 600 MG, 2X/DAY
  5. LISINOPRIL. [Concomitant]
     Active Substance: LISINOPRIL
     Dosage: 10 MG, 2X/DAY
  6. METOPROLOL. [Concomitant]
     Active Substance: METOPROLOL
     Indication: HEART RATE ABNORMAL
     Dosage: 200 MG, 2X/DAY (200 MG TABLET IN AM AND 200MG TABLET IN PM)
     Route: 048
     Dates: start: 201110
  7. FUROSEMIDE. [Concomitant]
     Active Substance: FUROSEMIDE
     Indication: JOINT SWELLING
     Dosage: 20 MG, 2X/DAY (20 MG IN THE MORNING AND 20 MG IN THE EVENING)
     Route: 048
     Dates: start: 201110
  8. LORAZEPAM. [Concomitant]
     Active Substance: LORAZEPAM
     Indication: NERVE INJURY
     Dosage: UNK
  9. STOOL SOFTENER (DOCUSATE) [Concomitant]
     Active Substance: DOCUSATE
     Indication: CONSTIPATION
     Dosage: UNK UNK, 1X/DAY
  10. TIKOSYN [Suspect]
     Active Substance: DOFETILIDE
     Indication: ATRIAL FIBRILLATION
     Dosage: UNK
  11. PRADAXA [Concomitant]
     Active Substance: DABIGATRAN ETEXILATE MESYLATE
     Indication: PROPHYLAXIS
     Dosage: 150 MG, 2X/DAY
     Route: 048
     Dates: start: 201110
  12. FUROSEMIDE. [Concomitant]
     Active Substance: FUROSEMIDE
     Indication: DIURETIC THERAPY
  13. PRADAXA [Concomitant]
     Active Substance: DABIGATRAN ETEXILATE MESYLATE
     Indication: ANTICOAGULANT THERAPY
  14. ASPIRIN. [Concomitant]
     Active Substance: ASPIRIN
     Indication: CARDIAC DISORDER
     Dosage: 81 MG, UNK
     Route: 048
     Dates: start: 201110
  15. CALCIUM [Concomitant]
     Active Substance: CALCIUM
     Dosage: UNK
     Route: 048
  16. TIKOSYN [Suspect]
     Active Substance: DOFETILIDE
     Indication: ARRHYTHMIA PROPHYLAXIS
     Dosage: 250 UG, 2X/DAY (ONE IN THE MORNING AND ONE AT NIGHT)
     Route: 048
     Dates: start: 20120323, end: 20170324
  17. LISINOPRIL. [Concomitant]
     Active Substance: LISINOPRIL
     Indication: BLOOD PRESSURE ABNORMAL
     Dosage: 20 MG, 2X/DAY
     Route: 048
     Dates: start: 201110

REACTIONS (8)
  - Influenza [Recovered/Resolved]
  - Ventricular tachycardia [Unknown]
  - Drug ineffective [Unknown]
  - Blood potassium decreased [Recovered/Resolved]
  - Influenza [Unknown]
  - Skin cancer [Unknown]
  - Presyncope [Unknown]
  - Heart rate irregular [Unknown]

NARRATIVE: CASE EVENT DATE: 201701
